FAERS Safety Report 5235823-2 (Version None)
Quarter: 2007Q1

REPORT INFORMATION
  Report Type: 
  Country: None (occurrence: None)
  Receive Date: 20070212
  Receipt Date: 20070205
  Transmission Date: 20070707
  Serious: Yes (Hospitalization, Other)
  Sender: FDA-Public Use
  Company Number: GB-BRISTOL-MYERS SQUIBB COMPANY-13641170

PATIENT
  Age: 53 Year
  Sex: Female

DRUGS (4)
  1. REYATAZ [Suspect]
     Indication: HIV INFECTION
  2. NORVIR [Suspect]
     Indication: HIV INFECTION
  3. KIVEXA [Suspect]
     Indication: HIV INFECTION
     Route: 048
  4. COTRIM [Suspect]

REACTIONS (1)
  - CARDIOMYOPATHY [None]
